FAERS Safety Report 13998171 (Version 1)
Quarter: 2017Q3

REPORT INFORMATION
  Report Type: Spontaneous
  Country: US (occurrence: None)
  Receive Date: 20170921
  Receipt Date: 20170921
  Transmission Date: 20171128
  Serious: Yes (Hospitalization)
  Sender: FDA-Public Use
  Company Number: None

PATIENT
  Age: 71 Year
  Sex: Female
  Weight: 95.5 kg

DRUGS (1)
  1. CARIMUNE [Suspect]
     Active Substance: HUMAN IMMUNOGLOBULIN G
     Indication: IMMUNODEFICIENCY COMMON VARIABLE
     Dosage: 60GRAMAS EVERY 3 WEEKS INTRAVENOUSLY
     Route: 042
     Dates: start: 20170601

REACTIONS (2)
  - Kidney infection [None]
  - Bronchitis [None]

NARRATIVE: CASE EVENT DATE: 20170711
